FAERS Safety Report 23655810 (Version 2)
Quarter: 2025Q3

REPORT INFORMATION
  Report Type: Report from Study
  Country: ZA (occurrence: ZA)
  Receive Date: 20240321
  Receipt Date: 20250804
  Transmission Date: 20251021
  Serious: Yes (Death)
  Sender: ABBVIE
  Company Number: ZA-ABBOTT-2024A-1379163

PATIENT
  Age: 69 Year
  Sex: Male

DRUGS (5)
  1. CREON [Suspect]
     Active Substance: PANCRELIPASE AMYLASE\PANCRELIPASE LIPASE\PANCRELIPASE PROTEASE
     Indication: Pancreatic failure
     Dosage: CREON 25000 (PANCREATIN)
     Route: 048
  2. GLUCOPHAGE XR [Concomitant]
     Active Substance: METFORMIN HYDROCHLORIDE
     Indication: Type 2 diabetes mellitus
     Dosage: GLUCOPHAGE XR?(METFORMIN) 1000 MG ONE TABLET TWICE A DAY
     Route: 048
  3. Colcine [Concomitant]
     Indication: Product used for unknown indication
     Route: 048
  4. Capexa [Concomitant]
     Indication: Chemotherapy
     Dosage: 500 MG FOUR TABLETS TWICE A DAY
     Route: 048
  5. ALLOPURINOL [Concomitant]
     Active Substance: ALLOPURINOL
     Indication: Prophylaxis
     Route: 048

REACTIONS (1)
  - Neoplasm malignant [Fatal]
